FAERS Safety Report 9837726 (Version 2)
Quarter: 2014Q1

REPORT INFORMATION
  Report Type: Report from Study
  Country: US (occurrence: US)
  Receive Date: 20140123
  Receipt Date: 20140210
  Transmission Date: 20141002
  Serious: Yes (Hospitalization)
  Sender: FDA-Public Use
  Company Number: US-ASTELLAS-2014US000443

PATIENT
  Age: 51 Year
  Sex: Male

DRUGS (2)
  1. ERLOTINIB TABLET [Suspect]
     Indication: NON-SMALL CELL LUNG CANCER
     Dosage: 150 MG, UID/QD
     Route: 048
     Dates: start: 20130320, end: 20130416
  2. AKT_INHIBITOR_MK2206 [Suspect]
     Indication: NON-SMALL CELL LUNG CANCER
     Dosage: 135 MG, WEEKLY
     Route: 048
     Dates: end: 20130416

REACTIONS (3)
  - Pyrexia [Unknown]
  - Femur fracture [Unknown]
  - Metastases to bone [Unknown]
